FAERS Safety Report 4892514-5 (Version None)
Quarter: 2006Q1

REPORT INFORMATION
  Report Type: 
  Country: None (occurrence: None)
  Receive Date: 20060125
  Receipt Date: 20060125
  Transmission Date: 20060701
  Serious: Yes (Life-Threatening, Hospitalization)
  Sender: FDA-Public Use
  Company Number: None

PATIENT
  Sex: Male
  Weight: 95.1 kg

DRUGS (9)
  1. WARFARIN [Suspect]
     Indication: DEEP VEIN THROMBOSIS
     Dosage: 15MG, QHS, PO
     Route: 048
     Dates: start: 20050910, end: 20051001
  2. WARFARIN [Suspect]
     Indication: PULMONARY EMBOLISM
     Dosage: 15MG, QHS, PO
     Route: 048
     Dates: start: 20050910, end: 20051001
  3. IRON [Concomitant]
  4. INSULIN [Concomitant]
  5. ALKA SELTZER [Concomitant]
  6. TRAMADOL HCL [Concomitant]
  7. DOXERCALCIFEROL [Concomitant]
  8. NIFEDIPINE [Concomitant]
  9. SODIUM BICARBONATE [Concomitant]

REACTIONS (7)
  - FAECES DISCOLOURED [None]
  - FATIGUE [None]
  - HAEMATEMESIS [None]
  - HAEMATOCRIT DECREASED [None]
  - HAEMOGLOBIN DECREASED [None]
  - INTERNATIONAL NORMALISED RATIO INCREASED [None]
  - OESOPHAGITIS [None]
